FAERS Safety Report 5797754-9 (Version None)
Quarter: 2008Q2

REPORT INFORMATION
  Report Type: 
  Country: None (occurrence: None)
  Receive Date: 20080630
  Receipt Date: 20080619
  Transmission Date: 20081010
  Serious: Yes (Other)
  Sender: FDA-Public Use
  Company Number: 2008S1010566

PATIENT
  Age: 47 Year
  Sex: Male

DRUGS (4)
  1. ETOPOSIDE [Suspect]
     Indication: ACUTE MYELOID LEUKAEMIA
     Dosage: 100 MG/M**2; DAILY
  2. CYTARABINE [Suspect]
     Indication: ACUTE MYELOID LEUKAEMIA
     Dosage: 100 MG/M**2; DAILY
  3. DAUNORUBICIN HCL [Suspect]
     Indication: ACUTE MYELOID LEUKAEMIA
     Dosage: 60 MG/M**2; DAILY
  4. IDARUBICIN HCL [Suspect]
     Indication: ACUTE MYELOID LEUKAEMIA

REACTIONS (2)
  - CYTOGENETIC ABNORMALITY [None]
  - MYELODYSPLASTIC SYNDROME [None]
